FAERS Safety Report 9331185 (Version 2)
Quarter: 2013Q4

REPORT INFORMATION
  Report Type: Spontaneous
  Country: GB (occurrence: GB)
  Receive Date: 20130605
  Receipt Date: 20131113
  Transmission Date: 20140711
  Serious: Yes (Other)
  Sender: FDA-Public Use
  Company Number: GB-009507513-1306GBR000351

PATIENT
  Age: 80 Year
  Sex: Female

DRUGS (11)
  1. ALENDRONATE SODIUM [Suspect]
     Indication: OSTEOPOROSIS
     Dosage: 70 MG, QW
     Route: 048
     Dates: start: 20121101, end: 20130515
  2. AMILORIDE HYDROCHLORIDE (+) FUROSEMIDE [Concomitant]
  3. ACETAMINOPHEN (+) CODEINE PHOSPHATE [Concomitant]
  4. CHOLECALCIFEROL [Concomitant]
  5. DIGOXIN [Concomitant]
  6. FYBOGEL [Concomitant]
  7. GAVISCON (ALGINIC ACID (+) ALUMINUM HYDROXIDE (+) MAGNESIUM TRISILICAT [Concomitant]
  8. GAVISCON (ALUMINUM HYDROXIDE (+) CALCIUM CARBONATE (+) SODIUM ALGINATE [Concomitant]
  9. MIGRALEVE (ACETAMINOPHEN (+) BUCLIZINE HYDROCHLORIDE (+) CODEINE PHOSP [Concomitant]
  10. SIMVASTATIN [Concomitant]
  11. WARFARIN [Concomitant]

REACTIONS (1)
  - Varicose vein [Not Recovered/Not Resolved]
